FAERS Safety Report 7908218-8 (Version None)
Quarter: 2011Q4

REPORT INFORMATION
  Report Type: 
  Country: None (occurrence: None)
  Receive Date: 20111111
  Receipt Date: 20111103
  Transmission Date: 20120403
  Serious: No
  Sender: FDA-Public Use
  Company Number: US-BIOGENIDEC-2011BI042286

PATIENT
  Sex: Female

DRUGS (1)
  1. TYSABRI [Suspect]
     Indication: MULTIPLE SCLEROSIS
     Route: 042
     Dates: start: 20090326

REACTIONS (9)
  - MUSCULOSKELETAL DISORDER [None]
  - LACERATION [None]
  - HYPOAESTHESIA [None]
  - FALL [None]
  - GAIT DISTURBANCE [None]
  - DIZZINESS [None]
  - DRUG INEFFECTIVE [None]
  - CENTRAL NERVOUS SYSTEM LESION [None]
  - PARAESTHESIA [None]
